FAERS Safety Report 26194296 (Version 1)
Quarter: 2025Q4

REPORT INFORMATION
  Report Type: Spontaneous
  Country: CN (occurrence: CN)
  Receive Date: 20251224
  Receipt Date: 20251224
  Transmission Date: 20260118
  Serious: Yes (Other)
  Sender: SANOFI AVENTIS
  Company Number: CN-SA-2025SA378476

PATIENT
  Age: 56 Year
  Sex: Male
  Weight: 77 kg

DRUGS (7)
  1. CLOPIDOGREL BISULFATE [Suspect]
     Active Substance: CLOPIDOGREL BISULFATE
     Indication: Coronary artery bypass
     Dosage: 75 MG
     Route: 048
     Dates: start: 20251006, end: 20251217
  2. NICORANDIL [Concomitant]
     Active Substance: NICORANDIL
     Indication: Coronary artery bypass
     Dosage: 5 MG, TID
     Route: 048
     Dates: start: 20251006, end: 20251217
  3. ASPIRIN [Concomitant]
     Active Substance: ASPIRIN
     Indication: Coronary artery bypass
     Dosage: 100 MG, QD
     Route: 048
     Dates: start: 20251006, end: 20251217
  4. METOPROLOL SUCCINATE [Concomitant]
     Active Substance: METOPROLOL SUCCINATE
     Indication: Coronary artery bypass
     Dosage: 47.5 MG, QD
     Route: 048
     Dates: start: 20251006, end: 20251217
  5. Diltiazem hydrochloride sustained release capsules (ii) [Concomitant]
     Indication: Coronary artery bypass
     Dosage: 90 MG, QD
     Route: 048
     Dates: start: 20251006, end: 20251217
  6. ATORVASTATIN CALCIUM [Concomitant]
     Active Substance: ATORVASTATIN CALCIUM
     Indication: Coronary artery bypass
     Dosage: 20 MG, QD
     Route: 048
     Dates: start: 20251006, end: 20251217
  7. EZETIMIBE [Concomitant]
     Active Substance: EZETIMIBE
     Indication: Coronary artery bypass
     Dosage: 10 MG, QD
     Route: 048
     Dates: start: 20251116, end: 20251217

REACTIONS (2)
  - Renal impairment [Recovering/Resolving]
  - Hepatic function abnormal [Recovering/Resolving]

NARRATIVE: CASE EVENT DATE: 20251204
